FAERS Safety Report 8315594-3 (Version None)
Quarter: 2012Q2

REPORT INFORMATION
  Report Type: 
  Country: None (occurrence: None)
  Receive Date: 20120426
  Receipt Date: 20120412
  Transmission Date: 20120825
  Serious: Yes (Other)
  Sender: FDA-Public Use
  Company Number: CHPA2012US009311

PATIENT
  Sex: Female

DRUGS (1)
  1. PHENYLEPHRINE HCL [Suspect]
     Indication: SINUS CONGESTION
     Dosage: 3 SPRAYS PER NOSTRIL, QHS
     Route: 045

REACTIONS (3)
  - BREAST CANCER [None]
  - INCORRECT DRUG ADMINISTRATION DURATION [None]
  - INCORRECT DOSE ADMINISTERED [None]
